FAERS Safety Report 10171211 (Version 2)
Quarter: 2014Q2

REPORT INFORMATION
  Report Type: Report from Study
  Country: US (occurrence: US)
  Receive Date: 20140514
  Receipt Date: 20140514
  Transmission Date: 20141212
  Serious: Yes (Other)
  Sender: FDA-Public Use
  Company Number: US-BAYER-2014-041915

PATIENT
  Age: 49 Year
  Sex: Male

DRUGS (1)
  1. STIVARGA [Suspect]
     Indication: COLORECTAL CANCER
     Dosage: 160 MG, QD
     Route: 048
     Dates: start: 201403, end: 20140420

REACTIONS (5)
  - Pneumonia [None]
  - Rash [None]
  - Myalgia [Not Recovered/Not Resolved]
  - Blood pressure increased [None]
  - Back pain [None]
